FAERS Safety Report 19894696 (Version 1)
Quarter: 2021Q3

REPORT INFORMATION
  Report Type: Spontaneous
  Country: FR (occurrence: FR)
  Receive Date: 20210929
  Receipt Date: 20210929
  Transmission Date: 20211014
  Serious: Yes (Life-Threatening)
  Sender: FDA-Public Use
  Company Number: FR-ACCORD-239973

PATIENT
  Age: 43 Year
  Sex: Male
  Weight: 70 kg

DRUGS (5)
  1. ESOMEPRAZOLE/ESOMEPRAZOLE MAGNESIUM/ESOMEPRAZOLE SODIUM [Suspect]
     Active Substance: ESOMEPRAZOLE
     Indication: ABDOMINAL PAIN UPPER
     Route: 048
     Dates: start: 20210709
  2. BACTRIM [Suspect]
     Active Substance: SULFAMETHOXAZOLE\TRIMETHOPRIM
     Indication: PROSTATITIS
     Dosage: ADULTS, TABLET, 2 / D
     Route: 048
     Dates: start: 20210724
  3. COMIRNATY [Suspect]
     Active Substance: TOZINAMERAN
     Indication: COVID-19 IMMUNISATION
     Dosage: CONCENTRATE FOR DISPERSION FOR INJECTION. COVID?19 MRNA?VACCINE (MODIFIED NUCLEOSIDE)
     Route: 030
     Dates: start: 20210614
  4. PERMIXON [Suspect]
     Active Substance: HERBALS\SAW PALMETTO
     Indication: PROSTATITIS
     Dosage: 160 MG, CAPSULE, NOT SPECIFIED
     Route: 048
     Dates: start: 20210724
  5. METEOSPASMYL [ALVERINE CITRATE;DL?METHIONINE] [Suspect]
     Active Substance: ALVERINE CITRATE\RACEMETHIONINE
     Indication: ABDOMINAL PAIN UPPER
     Dosage: SOFT CAPSULE, 3 / D
     Route: 048
     Dates: start: 20210709

REACTIONS (1)
  - Myocarditis [Recovered/Resolved]

NARRATIVE: CASE EVENT DATE: 20210802
